FAERS Safety Report 7400338-X (Version None)
Quarter: 2011Q2

REPORT INFORMATION
  Report Type: 
  Country: None (occurrence: None)
  Receive Date: 20110405
  Receipt Date: 20110405
  Transmission Date: 20111010
  Serious: Yes (Hospitalization)
  Sender: FDA-Public Use
  Company Number: None

PATIENT
  Sex: Female
  Weight: 72.8023 kg

DRUGS (1)
  1. AVELOX [Suspect]
     Indication: SINUSITIS
     Dosage: 400MG CAPSULE DAILY PO
     Route: 048
     Dates: start: 20110329, end: 20110330

REACTIONS (11)
  - NAUSEA [None]
  - AGITATION [None]
  - HEART RATE INCREASED [None]
  - TREMOR [None]
  - CONFUSIONAL STATE [None]
  - FEELING COLD [None]
  - HEADACHE [None]
  - ANXIETY [None]
  - BURNING SENSATION [None]
  - DISORIENTATION [None]
  - MUSCLE FATIGUE [None]
